FAERS Safety Report 18727471 (Version 2)
Quarter: 2021Q1

REPORT INFORMATION
  Report Type: Spontaneous
  Country: US (occurrence: US)
  Receive Date: 20210112
  Receipt Date: 20210224
  Transmission Date: 20210419
  Serious: No
  Sender: FDA-Public Use
  Company Number: US-ASTRAZENECA-2020SF71459

PATIENT
  Sex: Female
  Weight: 58.1 kg

DRUGS (2)
  1. BYDUREON BCISE [Suspect]
     Active Substance: EXENATIDE
     Indication: TYPE 2 DIABETES MELLITUS
     Route: 058
     Dates: start: 202008
  2. BYDUREON [Suspect]
     Active Substance: EXENATIDE
     Indication: TYPE 2 DIABETES MELLITUS
     Route: 058

REACTIONS (6)
  - Incorrect dose administered [Unknown]
  - Hypoglycaemia [Recovering/Resolving]
  - Injection site pain [Unknown]
  - Wrong technique in device usage process [Not Recovered/Not Resolved]
  - Needle issue [Unknown]
  - Device issue [Unknown]
